FAERS Safety Report 9178156 (Version 1)
Quarter: 2012Q4

REPORT INFORMATION
  Report Type: 
  Country: US (occurrence: US)
  Receive Date: 20121026
  Receipt Date: 20121026
  Transmission Date: 20130627
  Serious: No
  Sender: FDA-Public Use
  Company Number: US-ALLERGAN-1207682US

PATIENT
  Age: 85 Year
  Sex: Female

DRUGS (3)
  1. ALPHAGAN P [Suspect]
     Indication: GLAUCOMA
     Dosage: 1 Gtt, tid
     Route: 047
     Dates: start: 2004
  2. LUMIGAN [Suspect]
     Indication: GLAUCOMA
     Dosage: 1 Gtt, qhs
     Route: 047
     Dates: start: 2004
  3. TIMOLOL MALEATE [Suspect]
     Indication: GLAUCOMA
     Dosage: 1 Gtt, bid
     Route: 047
     Dates: start: 2010

REACTIONS (4)
  - Intraocular pressure test abnormal [Recovering/Resolving]
  - Dry mouth [Not Recovered/Not Resolved]
  - Oral pain [Not Recovered/Not Resolved]
  - Peripheral coldness [Not Recovered/Not Resolved]
